FAERS Safety Report 7647260-1 (Version None)
Quarter: 2011Q3

REPORT INFORMATION
  Report Type: 
  Country: None (occurrence: None)
  Receive Date: 20110801
  Receipt Date: 20110719
  Transmission Date: 20111222
  Serious: Yes (Hospitalization, Other)
  Sender: FDA-Public Use
  Company Number: US-ROCHE-761745

PATIENT
  Sex: Male
  Weight: 79.4 kg

DRUGS (2)
  1. ACCUTANE [Suspect]
     Route: 065
     Dates: start: 19960101, end: 19980101
  2. ACCUTANE [Suspect]
     Route: 065
     Dates: start: 19830101, end: 19840101

REACTIONS (13)
  - HAEMORRHOIDS [None]
  - COLONIC POLYP [None]
  - HEADACHE [None]
  - COLITIS ULCERATIVE [None]
  - ABDOMINAL PAIN [None]
  - SUICIDAL IDEATION [None]
  - INFLAMMATORY BOWEL DISEASE [None]
  - DRY SKIN [None]
  - RECTAL HAEMORRHAGE [None]
  - IRRITABLE BOWEL SYNDROME [None]
  - CHOLANGITIS SCLEROSING [None]
  - CROHN'S DISEASE [None]
  - PRURITUS [None]
